FAERS Safety Report 18391901 (Version 1)
Quarter: 2020Q4

REPORT INFORMATION
  Report Type: Spontaneous
  Country: ES (occurrence: ES)
  Receive Date: 20201016
  Receipt Date: 20201016
  Transmission Date: 20210114
  Serious: Yes (Hospitalization)
  Sender: FDA-Public Use
  Company Number: NVSC2020ES277777

PATIENT
  Age: 45 Year
  Sex: Female

DRUGS (6)
  1. EVEROLIMUS. [Suspect]
     Active Substance: EVEROLIMUS
     Indication: NEUROENDOCRINE TUMOUR
     Dosage: 10 MG, QD
     Route: 065
     Dates: start: 201706, end: 201711
  2. EVEROLIMUS. [Suspect]
     Active Substance: EVEROLIMUS
     Dosage: 10 MG, QD, RESTARTED
     Route: 065
     Dates: start: 201712
  3. OMEGA-3 ACIDS [Concomitant]
     Active Substance: OMEGA-3 FATTY ACIDS
     Indication: PRODUCT USED FOR UNKNOWN INDICATION
     Dosage: 1000 MG, Q8H
     Route: 065
     Dates: start: 201811
  4. EVEROLIMUS. [Suspect]
     Active Substance: EVEROLIMUS
     Dosage: 5 MG, QD, RESTARTED
     Route: 065
     Dates: start: 201804
  5. EVEROLIMUS. [Suspect]
     Active Substance: EVEROLIMUS
     Dosage: 5 MG, QD, RESTARTED
     Route: 065
     Dates: start: 201810
  6. FENOFIBRATE. [Concomitant]
     Active Substance: FENOFIBRATE
     Indication: NEUROENDOCRINE TUMOUR
     Dosage: 145 MG, Q24H
     Route: 065
     Dates: start: 201810

REACTIONS (7)
  - Blood triglycerides increased [Recovered/Resolved]
  - Hypertriglyceridaemia [Recovered/Resolved]
  - Blood triglycerides increased [Recovered/Resolved]
  - Hypertriglyceridaemia [Recovering/Resolving]
  - Ileus paralytic [Recovering/Resolving]
  - Pancreatitis acute [Recovered/Resolved]
  - Pancreatitis acute [Recovering/Resolving]

NARRATIVE: CASE EVENT DATE: 201711
